FAERS Safety Report 8273854-9 (Version None)
Quarter: 2012Q2

REPORT INFORMATION
  Report Type: 
  Country: None (occurrence: None)
  Receive Date: 20120411
  Receipt Date: 20120405
  Transmission Date: 20120825
  Serious: Yes (Other)
  Sender: FDA-Public Use
  Company Number: GB-SANOFI-AVENTIS-2012SA018662

PATIENT
  Age: 47 Year
  Sex: Male
  Weight: 119 kg

DRUGS (6)
  1. OMEPRAZOLE [Concomitant]
     Dates: start: 20120126, end: 20120223
  2. ATENOLOL AND CHLORTHALIDONE [Suspect]
     Route: 065
     Dates: start: 20111223, end: 20120120
  3. ATENOLOL AND CHLORTHALIDONE [Suspect]
     Route: 065
     Dates: start: 20120309
  4. SIMVASTATIN [Concomitant]
     Dates: start: 20111223, end: 20120120
  5. TRAMADOL HCL [Concomitant]
     Dates: start: 20120309
  6. ALBUTEROL [Concomitant]
     Dates: start: 20120112, end: 20120209

REACTIONS (4)
  - COUGH [None]
  - DYSPEPSIA [None]
  - DYSPNOEA [None]
  - WHEEZING [None]
